FAERS Safety Report 21610839 (Version 2)
Quarter: 2022Q4

REPORT INFORMATION
  Report Type: Spontaneous
  Country: KR (occurrence: KR)
  Receive Date: 20221117
  Receipt Date: 20221201
  Transmission Date: 20230112
  Serious: Yes (Life-Threatening, Hospitalization, Other)
  Sender: FDA-Public Use
  Company Number: KR-PERRIGO-22KR015036

PATIENT
  Age: 29 Year
  Sex: Male

DRUGS (2)
  1. NICOTINE POLACRILEX [Suspect]
     Active Substance: NICOTINE
     Indication: Product used for unknown indication
     Dosage: 10 MG, TWICE A DAY FOR 4 DAYS
     Route: 048
  2. NICOTINE POLACRILEX [Suspect]
     Active Substance: NICOTINE
     Dosage: 30 MG, SINGLE
     Route: 048

REACTIONS (6)
  - Tobacco poisoning [Unknown]
  - Overdose [Unknown]
  - Respiratory failure [Recovered/Resolved]
  - Respiratory acidosis [Recovered/Resolved]
  - Loss of consciousness [Recovered/Resolved]
  - Seizure [Recovered/Resolved]
